FAERS Safety Report 11700633 (Version 3)
Quarter: 2015Q4

REPORT INFORMATION
  Report Type: Spontaneous
  Country: US (occurrence: US)
  Receive Date: 20151105
  Receipt Date: 20151224
  Transmission Date: 20160304
  Serious: Yes (Hospitalization, Other)
  Sender: FDA-Public Use
  Company Number: US-SUN PHARMACEUTICAL INDUSTRIES LTD-2015US-105334

PATIENT
  Age: 80 Year
  Sex: Female

DRUGS (1)
  1. CLINDAMYCIN [Suspect]
     Active Substance: CLINDAMYCIN\CLINDAMYCIN PHOSPHATE
     Indication: ANTIBIOTIC PROPHYLAXIS
     Dosage: 2 DF, DAILY
     Route: 065
     Dates: start: 20150908

REACTIONS (11)
  - Cough [Not Recovered/Not Resolved]
  - Oral mucosal discolouration [Unknown]
  - Tongue discolouration [Unknown]
  - Drug hypersensitivity [Not Recovered/Not Resolved]
  - Pyrexia [Unknown]
  - Gastrointestinal inflammation [Recovering/Resolving]
  - Throat irritation [Not Recovered/Not Resolved]
  - Oral candidiasis [Unknown]
  - Dyspnoea [Unknown]
  - Abdominal pain [Recovering/Resolving]
  - Malaise [Not Recovered/Not Resolved]

NARRATIVE: CASE EVENT DATE: 2015
